FAERS Safety Report 8892623 (Version 1)
Quarter: 2012Q4

REPORT INFORMATION
  Report Type: 
  Country: US (occurrence: US)
  Receive Date: 20121107
  Receipt Date: 20121107
  Transmission Date: 20130627
  Serious: No
  Sender: FDA-Public Use
  Company Number: US-AMGEN-USASP2011057254

PATIENT
  Sex: Male
  Weight: 280 kg

DRUGS (9)
  1. ENBREL [Suspect]
     Indication: PRODUCT USED FOR UNKNOWN INDICATION
     Dosage: 50 mg, 2 times/wk
     Route: 058
     Dates: start: 201109
  2. FIBER [Concomitant]
     Dosage: 0.52 g, UNK
  3. NOVOLIN [Concomitant]
  4. MELOXICAM [Concomitant]
     Dosage: 7.5 mg, UNK
  5. LISINOPRIL [Concomitant]
     Dosage: 5 mg, UNK
  6. METFORMIN [Concomitant]
     Dosage: 500 mg, UNK
  7. PHENERGAN [Concomitant]
     Dosage: 25 mg, UNK
  8. LYRICA [Concomitant]
     Dosage: 25 mg, UNK
  9. VITAMIN B12 [Concomitant]

REACTIONS (1)
  - Blood glucose decreased [Unknown]
